FAERS Safety Report 18755129 (Version 1)
Quarter: 2021Q1

REPORT INFORMATION
  Report Type: Spontaneous
  Country: US (occurrence: US)
  Receive Date: 20210117
  Receipt Date: 20210117
  Transmission Date: 20210419
  Serious: Yes (Life-Threatening, Hospitalization)
  Sender: FDA-Public Use
  Company Number: None

PATIENT
  Age: 81 Year
  Sex: Female
  Weight: 68 kg

DRUGS (2)
  1. BAMLANIVIMAB. [Concomitant]
     Active Substance: BAMLANIVIMAB
     Dates: start: 20210111, end: 20210111
  2. BAMLANIVIMAB. [Suspect]
     Active Substance: BAMLANIVIMAB

REACTIONS (3)
  - Acute kidney injury [None]
  - Condition aggravated [None]
  - Hypoxia [None]

NARRATIVE: CASE EVENT DATE: 20210117
